FAERS Safety Report 7662461-4 (Version None)
Quarter: 2011Q3

REPORT INFORMATION
  Report Type: 
  Country: None (occurrence: None)
  Receive Date: 20110805
  Receipt Date: 20101129
  Transmission Date: 20111222
  Serious: No
  Sender: FDA-Public Use
  Company Number: US-ABBOTT-10P-163-0687838-00

PATIENT
  Sex: Female
  Weight: 68.1 kg

DRUGS (3)
  1. BYSTOLIC [Concomitant]
     Indication: PRODUCT USED FOR UNKNOWN INDICATION
     Route: 048
  2. PLAVIX [Concomitant]
     Indication: PRODUCT USED FOR UNKNOWN INDICATION
     Route: 048
  3. NIASPAN [Suspect]
     Indication: DYSLIPIDAEMIA
     Route: 048
     Dates: start: 20101025, end: 20101126

REACTIONS (4)
  - HEADACHE [None]
  - BURNING SENSATION [None]
  - GENERALISED ERYTHEMA [None]
  - FLUSHING [None]
